FAERS Safety Report 14315482 (Version 1)
Quarter: 2017Q4

REPORT INFORMATION
  Report Type: Spontaneous
  Country: US (occurrence: US)
  Receive Date: 20171221
  Receipt Date: 20171221
  Transmission Date: 20180321
  Serious: No
  Sender: FDA-Public Use
  Company Number: US-BAYER-2017-241186

PATIENT
  Sex: Female

DRUGS (1)
  1. DROSPIRENONE+ETHINYLESTRADIOL+L-5-METHYLTETRAHYDROFOLIC ACID-CA SA [Suspect]
     Active Substance: DROSPIRENONE\ETHINYL ESTRADIOL\LEVOMEFOLATE CALCIUM
     Route: 048

REACTIONS (2)
  - Drug ineffective for unapproved indication [None]
  - Product use in unapproved indication [None]
